FAERS Safety Report 5262205-X (Version None)
Quarter: 2007Q1

REPORT INFORMATION
  Report Type: 
  Country: None (occurrence: None)
  Receive Date: 20070312
  Receipt Date: 20070226
  Transmission Date: 20070707
  Serious: Yes (Hospitalization)
  Sender: FDA-Public Use
  Company Number: PHRM2007FR00897

PATIENT
  Age: 86 Year
  Sex: Female
  Weight: 55 kg

DRUGS (14)
  1. COTAREG [Suspect]
     Indication: HYPERTENSION
     Dosage: 1 DF, QD
     Route: 048
     Dates: end: 20070129
  2. DIGOXIN [Suspect]
     Dosage: 1 DF, QD
     Route: 048
     Dates: end: 20070129
  3. CORTANCYL [Suspect]
     Dosage: 20 MG, TID
     Route: 048
     Dates: start: 20070121, end: 20070129
  4. PREVISCAN [Concomitant]
     Dosage: 0.5 DF, QD
  5. FLECAINIDE ACETATE [Concomitant]
     Dosage: 100 MG, QD
  6. HEMIGOXINE [Concomitant]
     Dosage: 1 DF, QD
  7. LEVOTHYROXINE SODIUM [Concomitant]
  8. NITRODERM [Concomitant]
     Route: 062
  9. CELECTOL [Concomitant]
  10. TILDIEM [Concomitant]
  11. TRIATEC [Concomitant]
  12. FORLAX [Concomitant]
  13. BRICANYL [Concomitant]
  14. ATROVENT [Concomitant]

REACTIONS (15)
  - ABDOMINAL MASS [None]
  - ABDOMINAL PAIN [None]
  - BRADYCARDIA [None]
  - BRONCHITIS [None]
  - DYSPNOEA [None]
  - FALL [None]
  - HAEMOGLOBIN DECREASED [None]
  - HYPOKALAEMIA [None]
  - HYPONATRAEMIA [None]
  - INTERNATIONAL NORMALISED RATIO INCREASED [None]
  - LOSS OF CONSCIOUSNESS [None]
  - MALAISE [None]
  - MUSCLE HAEMORRHAGE [None]
  - TACHYPNOEA [None]
  - VENTRICULAR DYSFUNCTION [None]
